FAERS Safety Report 8401536-9 (Version None)
Quarter: 2012Q2

REPORT INFORMATION
  Report Type: 
  Country: None (occurrence: None)
  Receive Date: 20120601
  Receipt Date: 20120523
  Transmission Date: 20120825
  Serious: Yes (Life-Threatening, Other)
  Sender: FDA-Public Use
  Company Number: US-JNJFOC-20120312630

PATIENT
  Sex: Male
  Weight: 140 kg

DRUGS (40)
  1. ASPIRIN [Concomitant]
     Indication: CARDIOVASCULAR EVENT PROPHYLAXIS
     Route: 048
     Dates: start: 20000101
  2. CARTIA XT [Concomitant]
     Indication: HYPERTENSION
     Route: 048
     Dates: start: 20010701
  3. CLARINEX [Concomitant]
     Indication: MULTIPLE ALLERGIES
     Route: 048
     Dates: start: 20060401
  4. NOVOLOG [Concomitant]
     Indication: DIABETES MELLITUS
     Dosage: EVERY MORNING
     Route: 058
     Dates: start: 20070801
  5. TORSEMIDE [Concomitant]
     Route: 048
     Dates: start: 20100128, end: 20100305
  6. CALTRATE +D [Concomitant]
     Indication: MEDICAL DIET
     Route: 048
     Dates: start: 20120312, end: 20120518
  7. ALLOPURINOL [Concomitant]
     Indication: HYPERURICAEMIA
     Route: 065
     Dates: start: 20120412, end: 20120518
  8. ALLOPURINOL [Concomitant]
     Indication: PROPHYLAXIS
     Route: 065
     Dates: start: 20120412, end: 20120518
  9. AVAPRO [Concomitant]
     Indication: HYPERTENSION
     Route: 065
     Dates: start: 20020101, end: 20111006
  10. ABIRATERONE ACETATE [Suspect]
     Indication: PROSTATE CANCER METASTATIC
     Route: 048
     Dates: start: 20090716, end: 20120419
  11. VANTAS [Concomitant]
     Route: 065
     Dates: start: 20090716
  12. TORSEMIDE [Concomitant]
     Route: 048
     Dates: start: 20101230, end: 20110811
  13. AVAPRO [Concomitant]
     Route: 065
     Dates: start: 20020101, end: 20111230
  14. TRAMADOL HCL [Concomitant]
     Indication: CANCER PAIN
     Route: 048
     Dates: start: 20111121, end: 20111230
  15. NOVOLOG [Concomitant]
     Dosage: EVERY EVENING
     Route: 058
     Dates: start: 20070801
  16. SINGULAIR [Concomitant]
     Indication: MULTIPLE ALLERGIES
     Route: 048
     Dates: start: 20060401
  17. TETRACYCLINE [Concomitant]
     Indication: ROSACEA
     Route: 048
     Dates: start: 19970131
  18. CALTRATE +D [Concomitant]
     Route: 048
     Dates: start: 20100128, end: 20111202
  19. ALLOPURINOL [Concomitant]
     Route: 065
     Dates: start: 20120324, end: 20120412
  20. ALBUTEROL [Concomitant]
     Indication: CHRONIC OBSTRUCTIVE PULMONARY DISEASE
     Route: 045
     Dates: start: 20120412
  21. TORSEMIDE [Concomitant]
     Indication: HYPERTENSION
     Route: 048
     Dates: start: 20000901, end: 20100128
  22. TORSEMIDE [Concomitant]
     Route: 048
     Dates: start: 20100305, end: 20101230
  23. ALBUTEROL [Concomitant]
     Indication: BRONCHITIS
     Route: 045
     Dates: start: 20120412
  24. PROAIR HFA [Concomitant]
     Indication: CHRONIC OBSTRUCTIVE PULMONARY DISEASE
     Dosage: 2 PUFFS EVERY 4-6 HOURS
     Route: 045
     Dates: start: 20120412
  25. PLAVIX [Concomitant]
     Indication: ARTERIOSCLEROSIS
     Route: 048
     Dates: start: 20000901, end: 20120508
  26. VANTAS [Concomitant]
     Indication: CANCER HORMONAL THERAPY
     Route: 065
     Dates: start: 20061001
  27. CALTRATE +D [Concomitant]
     Route: 048
     Dates: start: 20120312, end: 20120518
  28. CALTRATE +D [Concomitant]
     Route: 048
     Dates: start: 20100128, end: 20111202
  29. IBUPROFEN (ADVIL) [Concomitant]
     Indication: MUSCULOSKELETAL PAIN
     Route: 048
     Dates: start: 20110901, end: 20111202
  30. LASIX [Concomitant]
     Indication: OEDEMA PERIPHERAL
     Route: 048
     Dates: start: 20110501, end: 20111202
  31. ABIRATERONE ACETATE [Suspect]
     Route: 048
  32. COREG [Concomitant]
     Indication: CORONARY ARTERY DISEASE
     Route: 048
     Dates: start: 20050901
  33. LANTUS [Concomitant]
     Indication: DIABETES MELLITUS
     Route: 058
     Dates: start: 20070801
  34. SIMCOR [Concomitant]
     Indication: HYPERLIPIDAEMIA
     Route: 048
     Dates: start: 20080801
  35. IBUPROFEN (ADVIL) [Concomitant]
     Indication: BACK PAIN
     Route: 048
     Dates: start: 20110901, end: 20111202
  36. PREDNISONE TAB [Suspect]
     Indication: PROSTATE CANCER METASTATIC
     Route: 048
     Dates: start: 20120423
  37. PREDNISONE TAB [Suspect]
     Route: 048
     Dates: start: 20090716
  38. TORSEMIDE [Concomitant]
     Route: 048
     Dates: start: 20110811
  39. EPLERENONE [Concomitant]
     Indication: OEDEMA
     Route: 048
     Dates: start: 20111119
  40. ALLOPURINOL [Concomitant]
     Route: 065
     Dates: start: 20120324, end: 20120412

REACTIONS (2)
  - BLOOD URIC ACID INCREASED [None]
  - HYPERURICAEMIA [None]
